FAERS Safety Report 17412142 (Version 2)
Quarter: 2020Q1

REPORT INFORMATION
  Report Type: Spontaneous
  Country: JP (occurrence: JP)
  Receive Date: 20200213
  Receipt Date: 20200319
  Transmission Date: 20200409
  Serious: Yes (Hospitalization, Other)
  Sender: FDA-Public Use
  Company Number: JP-AMGEN-JPNSP2020022173

PATIENT
  Age: 61 Year
  Sex: Male
  Weight: 75.5 kg

DRUGS (16)
  1. EPOETIN ALFA [Concomitant]
     Active Substance: ERYTHROPOIETIN
     Dosage: 1500 DOSAGE FORM, QWK
     Route: 065
     Dates: start: 20190511, end: 20190816
  2. EPOETIN ALFA [Concomitant]
     Active Substance: ERYTHROPOIETIN
     Dosage: 1500 DOSAGE FORM, QWK
     Route: 065
     Dates: start: 20191026, end: 20191203
  3. OXAROL MARUHO [Concomitant]
     Dosage: 10 MICROGRAM, 2 TIMES/WK
     Route: 065
     Dates: start: 20190413, end: 20190514
  4. OXAROL MARUHO [Concomitant]
     Dosage: 10 MICROGRAM, 2 TIMES/WK
     Route: 065
     Dates: start: 20190709, end: 20191111
  5. EPOETIN ALFA [Concomitant]
     Active Substance: ERYTHROPOIETIN
     Dosage: 750 DOSAGE FORM, QWK
     Route: 065
     Dates: start: 20191214
  6. FULSTAN [Concomitant]
     Dosage: 0.3 UG, EVERYDAY
     Route: 065
  7. PARSABIV [Suspect]
     Active Substance: ETELCALCETIDE HYDROCHLORIDE
     Indication: HYPERPARATHYROIDISM SECONDARY
     Dosage: 2.5 MILLIGRAM, 3 TIMES/WK
     Route: 010
     Dates: start: 20190604
  8. EPOETIN ALFA [Concomitant]
     Active Substance: ERYTHROPOIETIN
     Dosage: 9000 DF, QW
     Route: 065
     Dates: end: 20190508
  9. OXAROL MARUHO [Concomitant]
     Dosage: 5 MICROGRAM
     Route: 065
     Dates: end: 20190209
  10. EPOETIN ALFA [Concomitant]
     Active Substance: ERYTHROPOIETIN
     Dosage: 2250 DOSAGE FORM, QWK
     Route: 065
     Dates: start: 20190820, end: 20191023
  11. OXAROL MARUHO [Concomitant]
     Dosage: 5 MICROGRAM, 3 TIMES/WK
     Route: 065
     Dates: start: 20190212, end: 20190411
  12. OXAROL MARUHO [Concomitant]
     Dosage: 10 MICROGRAM, 3 TIMES/WK
     Route: 065
     Dates: start: 20190516, end: 20190708
  13. OXAROL MARUHO [Concomitant]
     Dosage: 5 MICROGRAM, 3 TIMES/WK
     Route: 065
     Dates: start: 20191112
  14. FOSRENOL [Concomitant]
     Active Substance: LANTHANUM CARBONATE
     Dosage: 1500 MG, EVERYDAY
     Route: 048
  15. P-TOL [SUCROFERRIC OXYHYDROXIDE] [Concomitant]
     Dosage: 1500 MILLIGRAM, QD
     Route: 048
  16. FULSTAN [Concomitant]
     Dosage: 0.3 MICROGRAM, QD
     Route: 065

REACTIONS (2)
  - Heat illness [Recovered/Resolved]
  - Shunt occlusion [Recovered/Resolved]

NARRATIVE: CASE EVENT DATE: 20190801
